FAERS Safety Report 23299645 (Version 2)
Quarter: 2024Q1

REPORT INFORMATION
  Report Type: Report from Study
  Country: US (occurrence: US)
  Receive Date: 20231215
  Receipt Date: 20240105
  Transmission Date: 20240410
  Serious: Yes (Hospitalization, Other)
  Sender: FDA-Public Use
  Company Number: US-VALIDUS PHARMACEUTICALS LLC-US-VDP-2023-019032

PATIENT

DRUGS (16)
  1. LOPRESSOR [Suspect]
     Active Substance: METOPROLOL TARTRATE
     Indication: Atrial fibrillation
     Dosage: 25 MG, BID
     Route: 048
     Dates: start: 20230816
  2. LOPRESSOR [Suspect]
     Active Substance: METOPROLOL TARTRATE
     Dosage: 12.5 MG, BID
     Route: 048
     Dates: start: 20231019, end: 20231202
  3. INLYTA [Suspect]
     Active Substance: AXITINIB
     Indication: Clear cell renal cell carcinoma
     Dosage: 1 TAB, BID (3 MG 2X/DAY)
     Route: 048
     Dates: start: 20210520, end: 20231027
  4. INLYTA [Suspect]
     Active Substance: AXITINIB
     Dosage: 1 TAB, BID (3 MG 2X/DAY)
     Route: 048
     Dates: start: 20231107
  5. INLYTA [Suspect]
     Active Substance: AXITINIB
     Dosage: 3 MG, BID
     Route: 048
     Dates: start: 20231208
  6. OCUVITE ADULT 50+ [ASCORBIC ACID;COPPER GLUCONATE;FISH OIL;TOCOPHEROL; [Concomitant]
     Indication: Macular degeneration
     Dosage: UNK
     Route: 048
     Dates: start: 20210709
  7. FENTANYL [Concomitant]
     Active Substance: FENTANYL\FENTANYL CITRATE
     Indication: Pain
     Dosage: UNK
     Route: 061
     Dates: start: 20230201
  8. CALCIUM\VITAMIN D [Concomitant]
     Active Substance: CALCIUM\VITAMIN D
     Indication: Supplementation therapy
     Dosage: UNK
     Route: 048
     Dates: start: 2019
  9. CENTRUM SILVER [ASCORBIC ACID;CALCIUM;MINERALS NOS;RETINOL;TOCOPHERYL [Concomitant]
     Indication: Supplementation therapy
     Dosage: UNK
     Route: 048
     Dates: start: 2019
  10. DULOXETINE [Concomitant]
     Active Substance: DULOXETINE
     Indication: Depression
     Dosage: UNK
     Route: 048
     Dates: start: 200009
  11. FINASTERIDE [Concomitant]
     Active Substance: FINASTERIDE
     Indication: Benign prostatic hyperplasia
     Dosage: UNK
     Route: 048
     Dates: start: 201708
  12. LEVOTHYROXINE [Concomitant]
     Active Substance: LEVOTHYROXINE
     Indication: Hypothyroidism
     Dosage: UNK
     Route: 048
     Dates: start: 202101
  13. MAGNESIUM [Concomitant]
     Active Substance: MAGNESIUM
     Indication: Supplementation therapy
     Dosage: UNK
     Route: 048
     Dates: start: 201503
  14. OXYCODONE [Concomitant]
     Active Substance: OXYCODONE
     Indication: Pain
     Dosage: UNK
     Route: 048
     Dates: start: 2015
  15. TAMSULOSIN [Concomitant]
     Active Substance: TAMSULOSIN
     Indication: Benign prostatic hyperplasia
     Dosage: UNK
     Route: 048
     Dates: start: 2015
  16. AMIODARONE [Concomitant]
     Active Substance: AMIODARONE
     Indication: Atrial fibrillation
     Dosage: UNK
     Route: 048
     Dates: start: 20230816

REACTIONS (1)
  - Syncope [Recovering/Resolving]

NARRATIVE: CASE EVENT DATE: 20231102
